FAERS Safety Report 8135687-3 (Version None)
Quarter: 2012Q1

REPORT INFORMATION
  Report Type: 
  Country: None (occurrence: None)
  Receive Date: 20120203
  Receipt Date: 20120126
  Transmission Date: 20120608
  Serious: Yes (Death, Hospitalization, Disabling, Other)
  Sender: FDA-Public Use
  Company Number: 2012SGN00027

PATIENT
  Age: 75 Year
  Sex: Male
  Weight: 82 kg

DRUGS (5)
  1. PREDNISOLONE ACETATE [Concomitant]
  2. BRENTUXIMAB VEDOTIN (BRENTUXIMAB VEDOTIN) INJECTION [Suspect]
     Indication: MYCOSIS FUNGOIDES
     Dosage: 1.8 MG/KG, Q12D, INTRAVENOUS
     Route: 042
     Dates: start: 20110906, end: 20111220
  3. GABAPENTIN [Concomitant]
  4. TRIAMCINOLONE (TRIAMCINOLONE ACETONIDE) [Concomitant]
  5. LEVOFLOXACIN [Concomitant]

REACTIONS (24)
  - GAIT DISTURBANCE [None]
  - NEOPLASM SKIN [None]
  - BALANCE DISORDER [None]
  - SEPSIS [None]
  - ULCER [None]
  - SUPRAVENTRICULAR TACHYCARDIA [None]
  - AXONAL NEUROPATHY [None]
  - CEREBRAL SMALL VESSEL ISCHAEMIC DISEASE [None]
  - PNEUMONIA [None]
  - LOSS OF PROPRIOCEPTION [None]
  - PROGRESSIVE MULTIFOCAL LEUKOENCEPHALOPATHY [None]
  - CONDITION AGGRAVATED [None]
  - RESPIRATORY DISORDER [None]
  - PERIPHERAL SENSORY NEUROPATHY [None]
  - NERVOUS SYSTEM DISORDER [None]
  - DYSSTASIA [None]
  - ACTIVITIES OF DAILY LIVING IMPAIRED [None]
  - LYMPHOMA [None]
  - LUNG CONSOLIDATION [None]
  - REFUSAL OF TREATMENT BY PATIENT [None]
  - HYPOAESTHESIA [None]
  - DEMYELINATING POLYNEUROPATHY [None]
  - CARDIOPULMONARY FAILURE [None]
  - SINUS TACHYCARDIA [None]
